FAERS Safety Report 8972786 (Version 3)
Quarter: 2013Q1

REPORT INFORMATION
  Report Type: Report from Study
  Country: US (occurrence: US)
  Receive Date: 20121219
  Receipt Date: 20130301
  Transmission Date: 20140127
  Serious: Yes (Hospitalization)
  Sender: FDA-Public Use
  Company Number: US-EISAI INC-E2007-00930-CLI-US

PATIENT
  Age: 4 Year
  Sex: Female
  Weight: 16.8 kg

DRUGS (13)
  1. E2007 [Suspect]
     Indication: EPILEPSY
     Dosage: CORE PHASE 0.15 MG/KG DAILY DOSE
     Route: 048
     Dates: start: 20120320, end: 20120501
  2. E2007 [Suspect]
     Route: 048
     Dates: start: 20120502, end: 20120522
  3. E2007 [Suspect]
     Dosage: MAINTENANCE PHASE 0.15 MG/KG DAILY DOSE
     Route: 048
     Dates: start: 20120523, end: 20120605
  4. E2007 [Suspect]
     Dosage: EXTENSION PHASE 0.15 DAILY DOSE
     Route: 048
     Dates: start: 20120606
  5. DEPAKOTE [Concomitant]
     Dosage: 7 ML BID (250 MG/5 ML)
     Route: 048
     Dates: end: 20120625
  6. DEPAKOTE [Concomitant]
     Dosage: 8 ML BID (50MG/KG)
     Route: 048
     Dates: start: 20120726, end: 20120808
  7. DEPAKOTE [Concomitant]
     Dosage: 7.5 ML BID (250 MG/5 ML)
     Route: 048
     Dates: start: 20120809, end: 20121001
  8. DEPAKOTE [Concomitant]
     Dosage: 6.5 ML AM ONLY (250 MG/5ML); THEN 6 ML BID STARTING PM
     Route: 048
     Dates: start: 20121002, end: 20121002
  9. DEPAKOTE [Concomitant]
     Route: 048
     Dates: start: 20121003
  10. DEPAKOTE [Concomitant]
     Dosage: 6 ML BID (250 MG/5 ML)
     Route: 048
     Dates: start: 20111128
  11. TRILEPTAL [Concomitant]
     Dosage: 7.5 ML BID (300 MG/5 ML)
     Route: 048
     Dates: start: 20111128
  12. ONFI [Concomitant]
     Route: 048
     Dates: start: 20120905
  13. CARNITINE [Concomitant]
     Route: 048
     Dates: start: 20120801

REACTIONS (3)
  - Cyanosis [Recovered/Resolved]
  - Convulsion [Recovered/Resolved]
  - Mental status changes [Recovered/Resolved]
